FAERS Safety Report 12561496 (Version 1)
Quarter: 2016Q3

REPORT INFORMATION
  Report Type: Other
  Country: None (occurrence: ES)
  Receive Date: 20160715
  Receipt Date: 20160715
  Transmission Date: 20161109
  Serious: Yes (Other)
  Sender: FDA-Public Use
  Company Number: ES-MERCK KGAA-1055108

PATIENT

DRUGS (1)
  1. NOVOTHYROX [Suspect]
     Active Substance: LEVOTHYROXINE SODIUM

REACTIONS (5)
  - Foetal growth restriction [None]
  - Monoclonal immunoglobulin present [None]
  - Light chain analysis abnormal [None]
  - Lung disorder [None]
  - Foetal exposure during pregnancy [None]
